FAERS Safety Report 11457047 (Version 1)
Quarter: 2015Q3

REPORT INFORMATION
  Report Type: Spontaneous
  Country: US (occurrence: None)
  Receive Date: 20150902
  Receipt Date: 20150902
  Transmission Date: 20151125
  Serious: Yes (Hospitalization)
  Sender: FDA-Public Use
  Company Number: M2015-029

PATIENT
  Age: 11 Year
  Sex: Male

DRUGS (2)
  1. CANDIDA ALBICANS, 1:10 W/V, JUBILANT HOLLISTERSTIER [Suspect]
     Active Substance: ALLERGENIC EXTRACT- CANDIDA
     Indication: SKIN PAPILLOMA
     Dosage: 0.05CC, NP, INTRADERMAL
     Route: 023
     Dates: start: 20150807
  2. CANDIDA ALBICANS, 1:10 W/V, JUBILANT HOLLISTERSTIER [Suspect]
     Active Substance: ALLERGENIC EXTRACT- CANDIDA
     Indication: OFF LABEL USE
     Dosage: 0.05CC, NP, INTRADERMAL
     Route: 023
     Dates: start: 20150807

REACTIONS (5)
  - Erythema [None]
  - Off label use [None]
  - Pain in extremity [None]
  - Peripheral swelling [None]
  - Pyrexia [None]

NARRATIVE: CASE EVENT DATE: 20150807
